FAERS Safety Report 7766849-2 (Version None)
Quarter: 2011Q3

REPORT INFORMATION
  Report Type: 
  Country: None (occurrence: None)
  Receive Date: 20110922
  Receipt Date: 20110912
  Transmission Date: 20111222
  Serious: Yes (Other)
  Sender: FDA-Public Use
  Company Number: US-US-EMD SERONO, INC.-7082841

PATIENT
  Sex: Female

DRUGS (2)
  1. STEROIDS [Suspect]
     Indication: PRODUCT USED FOR UNKNOWN INDICATION
     Route: 048
     Dates: end: 20110601
  2. REBIF [Suspect]
     Indication: MULTIPLE SCLEROSIS
     Route: 058
     Dates: start: 20101104

REACTIONS (3)
  - DEPRESSION [None]
  - INJECTION SITE DISCOLOURATION [None]
  - OSTEONECROSIS [None]
